FAERS Safety Report 14208731 (Version 2)
Quarter: 2018Q1

REPORT INFORMATION
  Report Type: Spontaneous
  Country: US (occurrence: US)
  Receive Date: 20171121
  Receipt Date: 20180224
  Transmission Date: 20180508
  Serious: Yes (Hospitalization, Other)
  Sender: FDA-Public Use
  Company Number: US-JNJFOC-20171028487

PATIENT
  Age: 54 Year
  Sex: Male

DRUGS (2)
  1. XARELTO [Suspect]
     Active Substance: RIVAROXABAN
     Indication: DEEP VEIN THROMBOSIS
     Route: 048
     Dates: start: 20151014, end: 20160424
  2. XARELTO [Suspect]
     Active Substance: RIVAROXABAN
     Indication: THROMBOSIS
     Route: 048
     Dates: start: 20151014, end: 20160424

REACTIONS (4)
  - Haematemesis [Recovering/Resolving]
  - Rectal haemorrhage [Recovering/Resolving]
  - Fall [Unknown]
  - Ecchymosis [Unknown]

NARRATIVE: CASE EVENT DATE: 20151021
